FAERS Safety Report 6122286-8 (Version None)
Quarter: 2009Q1

REPORT INFORMATION
  Report Type: 
  Country: None (occurrence: None)
  Receive Date: 20090316
  Receipt Date: 20090305
  Transmission Date: 20090719
  Serious: Yes (Hospitalization)
  Sender: FDA-Public Use
  Company Number: ADE2009-0473

PATIENT
  Age: 43 Year
  Sex: Male

DRUGS (8)
  1. FLUCONAZOLE [Suspect]
     Indication: ORAL CANDIDIASIS
  2. SIMVASTATIN [Suspect]
     Dosage: ORAL
     Route: 048
  3. ATENOLOL [Concomitant]
  4. CLOPIDOGREL [Concomitant]
  5. CO-TRIMOXAZOLE [Concomitant]
  6. GLICLAZIDE [Concomitant]
  7. METFORMIN [Concomitant]
  8. RAMIPRIL [Concomitant]

REACTIONS (12)
  - ASTHENIA [None]
  - BODY TEMPERATURE INCREASED [None]
  - DYSSTASIA [None]
  - GAIT DISTURBANCE [None]
  - HAEMOGLOBIN DECREASED [None]
  - HEPATITIS B SURFACE ANTIGEN POSITIVE [None]
  - HYPOREFLEXIA [None]
  - LUNG CONSOLIDATION [None]
  - MYALGIA [None]
  - PNEUMOCYSTIS JIROVECI PNEUMONIA [None]
  - RENAL IMPAIRMENT [None]
  - TUBERCULOSIS [None]
